FAERS Safety Report 6031889-0 (Version None)
Quarter: 2008Q4

REPORT INFORMATION
  Report Type: 
  Country: None (occurrence: None)
  Receive Date: 20081229
  Receipt Date: 20071204
  Transmission Date: 20090506
  Serious: Yes (Life-Threatening, Hospitalization, Disabling, Other)
  Sender: FDA-Public Use
  Company Number: WAES 0712USA01427

PATIENT
  Age: 74 Year
  Sex: Female
  Weight: 71.6683 kg

DRUGS (2)
  1. ZETIA [Suspect]
     Indication: BLOOD CHOLESTEROL
     Dosage: 10 MG DAILY, PO
     Route: 048
     Dates: start: 20071101, end: 20071101
  2. LIPITOR [Concomitant]

REACTIONS (1)
  - RHABDOMYOLYSIS [None]
